FAERS Safety Report 15560674 (Version 1)
Quarter: 2018Q4

REPORT INFORMATION
  Report Type: Spontaneous
  Country: US (occurrence: US)
  Receive Date: 20181029
  Receipt Date: 20181029
  Transmission Date: 20190205
  Serious: No
  Sender: FDA-Public Use
  Company Number: US-PFIZER INC-2018438409

PATIENT
  Age: 67 Year
  Sex: Female

DRUGS (2)
  1. SYNTHROID [Suspect]
     Active Substance: LEVOTHYROXINE SODIUM
     Indication: HYPOTHYROIDISM
     Dosage: 137 UG, DAILY (1 IN 1 D)
     Route: 048
     Dates: start: 1998
  2. CYTOMEL [Suspect]
     Active Substance: LIOTHYRONINE SODIUM
     Indication: HYPOTHYROIDISM
     Dosage: 10 UG, DAILY (5 UG, 2 IN 1 D)
     Route: 048
     Dates: start: 1999

REACTIONS (4)
  - Sleep disorder [Unknown]
  - Thinking abnormal [Unknown]
  - Agitation [Unknown]
  - Sedation [Unknown]
